FAERS Safety Report 4795763-X (Version None)
Quarter: 2005Q3

REPORT INFORMATION
  Report Type: 
  Country: None (occurrence: None)
  Receive Date: 20050916
  Receipt Date: 20040902
  Transmission Date: 20060218
  Serious: Yes (Other)
  Sender: FDA-Public Use
  Company Number: US-JNJFOC-20040708165

PATIENT
  Age: 32 Year
  Sex: Female
  Weight: 65.7716 kg

DRUGS (3)
  1. TOPAMAX [Suspect]
     Indication: AFFECTIVE DISORDER
     Dosage: 25 MG, 1 IN 1 DAY, ORAL; SEE IMAGE
     Route: 048
     Dates: start: 20040615, end: 20040622
  2. TOPAMAX [Suspect]
     Indication: AFFECTIVE DISORDER
     Dosage: 25 MG, 1 IN 1 DAY, ORAL; SEE IMAGE
     Route: 048
     Dates: start: 20040622, end: 20040625
  3. WELLBUTRIN XL [Concomitant]

REACTIONS (3)
  - HEADACHE [None]
  - INTRAOCULAR PRESSURE INCREASED [None]
  - VISUAL ACUITY REDUCED [None]
